FAERS Safety Report 8230069-8 (Version None)
Quarter: 2012Q1

REPORT INFORMATION
  Report Type: 
  Country: None (occurrence: None)
  Receive Date: 20120323
  Receipt Date: 20120320
  Transmission Date: 20120608
  Serious: No
  Sender: FDA-Public Use
  Company Number: US-PFIZER INC-2012073753

PATIENT
  Sex: Female
  Weight: 62.1 kg

DRUGS (6)
  1. PRILOSEC [Suspect]
     Indication: DYSPEPSIA
     Dosage: UNK
     Dates: end: 20120101
  2. HYDROCHLOROTHIAZIDE [Concomitant]
     Dosage: UNK
  3. PREMARIN [Concomitant]
     Indication: HORMONE LEVEL ABNORMAL
     Dosage: UNK
  4. LIPITOR [Suspect]
     Dosage: UNK
  5. LIPITOR [Suspect]
     Indication: BLOOD CHOLESTEROL INCREASED
     Dosage: 20 MG, 1X/DAY
     Route: 048
  6. LISINOPRIL [Concomitant]
     Dosage: UNK

REACTIONS (2)
  - DRUG INEFFECTIVE [None]
  - DYSPEPSIA [None]
